FAERS Safety Report 4842025-8 (Version None)
Quarter: 2005Q4

REPORT INFORMATION
  Report Type: 
  Country: None (occurrence: None)
  Receive Date: 20051130
  Receipt Date: 20050816
  Transmission Date: 20060501
  Serious: Yes (Other)
  Sender: FDA-Public Use
  Company Number: 2005SE04735

PATIENT
  Age: 39 Year
  Sex: Female
  Weight: 84 kg

DRUGS (4)
  1. SEROQUEL [Suspect]
     Indication: PSYCHOTIC DISORDER
     Route: 048
     Dates: start: 20040101, end: 20040301
  2. SEROQUEL [Suspect]
     Route: 048
     Dates: start: 20040301
  3. SEROQUEL [Suspect]
     Route: 048
     Dates: end: 20050101
  4. SEROQUEL [Suspect]
     Route: 048
     Dates: start: 20050101

REACTIONS (5)
  - BLOOD GLUCOSE INCREASED [None]
  - GAMMA-GLUTAMYLTRANSFERASE INCREASED [None]
  - HEPATIC ENZYME INCREASED [None]
  - LIPIDS INCREASED [None]
  - WEIGHT INCREASED [None]
